FAERS Safety Report 15713058 (Version 22)
Quarter: 2020Q4

REPORT INFORMATION
  Report Type: Other
  Country: DE (occurrence: DE)
  Receive Date: 20181212
  Receipt Date: 20201225
  Transmission Date: 20210113
  Serious: Yes (Other)
  Sender: FDA-Public Use
  Company Number: DE-ROCHE-2228639

PATIENT
  Age: 30 Year
  Sex: Female
  Weight: 56 kg

DRUGS (9)
  1. OCREVUS [Suspect]
     Active Substance: OCRELIZUMAB
     Indication: RELAPSING-REMITTING MULTIPLE SCLEROSIS
     Dosage: SECOND OCRELIZUMAB INFUSION ON 06/DEC/2018
     Route: 042
     Dates: start: 20181122, end: 20181206
  2. MIRTAZAPINE. [Concomitant]
     Active Substance: MIRTAZAPINE
     Dosage: IN THE EVENING
     Route: 048
     Dates: start: 20190111
  3. VIGANTOL OIL [Concomitant]
     Dosage: 20000 IU/ML
  4. MIRTAZAPINE. [Concomitant]
     Active Substance: MIRTAZAPINE
     Indication: DEPRESSION
     Dosage: 0-0-0.5
     Route: 048
  5. OCREVUS [Suspect]
     Active Substance: OCRELIZUMAB
     Dosage: NEXT DOSE WAS ADMINISTERED ON 22/JUN/2020
     Route: 042
     Dates: start: 20190705
  6. VIGANTOL OIL [Concomitant]
     Dosage: 20000 IU/ML
  7. WICK MEDINITE [Concomitant]
  8. CORTISONE [Suspect]
     Active Substance: CORTISONE
     Indication: PRODUCT USED FOR UNKNOWN INDICATION
     Route: 065
  9. ACIMETHIN [Concomitant]
     Active Substance: METHIONINE

REACTIONS (34)
  - Herpes virus infection [Recovered/Resolved]
  - Food craving [Recovered/Resolved]
  - Upper respiratory tract infection [Recovered/Resolved]
  - Tinnitus [Recovered/Resolved]
  - Depressed mood [Recovered/Resolved]
  - Neuritis [Recovering/Resolving]
  - Multiple sclerosis relapse [Not Recovered/Not Resolved]
  - Dry skin [Recovering/Resolving]
  - Dizziness [Recovered/Resolved]
  - Thirst [Recovered/Resolved]
  - Oral herpes [Recovered/Resolved]
  - Headache [Recovered/Resolved]
  - Urinary tract infection [Recovering/Resolving]
  - Fatigue [Recovered/Resolved]
  - Nasopharyngitis [Recovered/Resolved]
  - Headache [Recovered/Resolved]
  - Pain in extremity [Recovered/Resolved]
  - Herpes virus infection [Recovered/Resolved]
  - Oral herpes [Recovered/Resolved]
  - Dry eye [Recovering/Resolving]
  - Paraesthesia [Recovered/Resolved]
  - Bladder pain [Recovered/Resolved]
  - Back pain [Recovered/Resolved]
  - Nausea [Recovered/Resolved]
  - Influenza like illness [Recovered/Resolved]
  - Malaise [Recovered/Resolved]
  - Eye irritation [Recovering/Resolving]
  - Fatigue [Recovered/Resolved]
  - Micturition disorder [Recovered/Resolved]
  - Dermatitis [Recovering/Resolving]
  - Pain [Not Recovered/Not Resolved]
  - Cardiovascular disorder [Recovered/Resolved]
  - Gastritis [Recovered/Resolved]
  - Sleep disorder [Recovered/Resolved]

NARRATIVE: CASE EVENT DATE: 20181122
